FAERS Safety Report 9773647 (Version 6)
Quarter: 2014Q3

REPORT INFORMATION
  Report Type: Spontaneous
  Country: US (occurrence: US)
  Receive Date: 20131219
  Receipt Date: 20140821
  Transmission Date: 20150326
  Serious: Yes (Other)
  Sender: FDA-Public Use
  Company Number: US-ACORDA-ACO_38895_2013

PATIENT
  Age: 64 Year
  Sex: Female
  Weight: 84.81 kg

DRUGS (9)
  1. AMPYRA [Suspect]
     Active Substance: DALFAMPRIDINE
     Indication: MULTIPLE SCLEROSIS
     Dosage: 10 MG, QD
     Route: 048
     Dates: start: 20131003, end: 20131003
  2. CALCIUM + D3 [Concomitant]
     Active Substance: CALCIUM\CHOLECALCIFEROL
     Indication: PRODUCT USED FOR UNKNOWN INDICATION
     Dosage: UNK
     Route: 065
  3. AMPYRA [Suspect]
     Active Substance: DALFAMPRIDINE
     Dosage: 10 MG, BID
     Route: 048
     Dates: start: 20131004, end: 20140527
  4. AMPYRA [Suspect]
     Active Substance: DALFAMPRIDINE
     Dosage: UNK
     Dates: end: 20140728
  5. AMPYRA [Suspect]
     Active Substance: DALFAMPRIDINE
     Indication: GAIT DISTURBANCE
     Dosage: 10 MG, BID
     Route: 048
     Dates: start: 20130923
  6. MULTIVITAMINS [Concomitant]
     Active Substance: VITAMINS
     Indication: PRODUCT USED FOR UNKNOWN INDICATION
     Dosage: UNK,UNK
     Route: 065
  7. AMPYRA [Suspect]
     Active Substance: DALFAMPRIDINE
     Dosage: 10 MG, BID
     Route: 048
     Dates: start: 20140603
  8. AMPYRA [Suspect]
     Active Substance: DALFAMPRIDINE
     Dosage: UNK
     Dates: end: 20140122
  9. ALEVE [Concomitant]
     Active Substance: NAPROXEN SODIUM
     Indication: PAIN
     Dosage: UNK, PRN
     Route: 065

REACTIONS (19)
  - Sciatica [Recovering/Resolving]
  - Facial pain [Recovering/Resolving]
  - Gait disturbance [Recovering/Resolving]
  - Initial insomnia [Not Recovered/Not Resolved]
  - Dizziness [Recovered/Resolved]
  - Multiple sclerosis [Not Recovered/Not Resolved]
  - Limb injury [Unknown]
  - Therapy cessation [Unknown]
  - Erythema [Recovering/Resolving]
  - Drug dose omission [Unknown]
  - Pain [Not Recovered/Not Resolved]
  - Joint injury [Unknown]
  - Condition aggravated [Unknown]
  - Dysstasia [Unknown]
  - Muscular weakness [Recovering/Resolving]
  - Fall [Unknown]
  - Balance disorder [Not Recovered/Not Resolved]
  - Drug ineffective [Unknown]
  - Musculoskeletal pain [Not Recovered/Not Resolved]

NARRATIVE: CASE EVENT DATE: 2013
